FAERS Safety Report 12520356 (Version 2)
Quarter: 2016Q3

REPORT INFORMATION
  Report Type: Spontaneous
  Country: CM (occurrence: CM)
  Receive Date: 20160701
  Receipt Date: 20160708
  Transmission Date: 20161109
  Serious: Yes (Other)
  Sender: FDA-Public Use
  Company Number: CM-SUN PHARMACEUTICAL INDUSTRIES LTD-2016RR-119446

PATIENT
  Age: 52 Year
  Sex: Male

DRUGS (4)
  1. TRAMADOL. [Concomitant]
     Active Substance: TRAMADOL
     Indication: SCIATICA
     Dosage: 100 MG, UNK
     Route: 042
     Dates: start: 2014
  2. TRAMADOL/PARACETAMOL [Suspect]
     Active Substance: ACETAMINOPHEN\TRAMADOL
     Indication: SCIATICA
     Dosage: 325 MG/37,5 MG
     Route: 048
     Dates: start: 201312
  3. TRAMADOL. [Concomitant]
     Active Substance: TRAMADOL
     Indication: SCIATICA
     Dosage: 50 MG, UNK
     Route: 065
  4. TRAMADOL. [Concomitant]
     Active Substance: TRAMADOL
     Indication: SCIATICA
     Dosage: 150 MG, DAILY
     Route: 048
     Dates: start: 2014

REACTIONS (1)
  - Condition aggravated [Recovered/Resolved]
